FAERS Safety Report 10903874 (Version 1)
Quarter: 2015Q1

REPORT INFORMATION
  Report Type: Spontaneous
  Country: GB (occurrence: GB)
  Receive Date: 20150311
  Receipt Date: 20150311
  Transmission Date: 20150721
  Serious: Yes (Other)
  Sender: FDA-Public Use
  Company Number: GB-DRREDDYS-GER/UKI/15/0046538

PATIENT
  Age: 38 Year
  Sex: Female
  Weight: 64 kg

DRUGS (3)
  1. FLUOXETINE [Suspect]
     Active Substance: FLUOXETINE\FLUOXETINE HYDROCHLORIDE
     Indication: PRODUCT USED FOR UNKNOWN INDICATION
     Dates: start: 20150220
  2. PROMETHAZINE TEOCLATE [Concomitant]
     Active Substance: PROMETHAZINE TEOCLATE
     Indication: PRODUCT USED FOR UNKNOWN INDICATION
     Dates: start: 20080708, end: 20150220
  3. PHENOXYMETHYLPENICILLIN [Concomitant]
     Active Substance: PENICILLIN V
     Indication: PRODUCT USED FOR UNKNOWN INDICATION
     Dates: start: 20150108, end: 20150206

REACTIONS (2)
  - Anxiety [Recovered/Resolved]
  - Panic attack [Recovered/Resolved]

NARRATIVE: CASE EVENT DATE: 20150227
